FAERS Safety Report 6716363-8 (Version None)
Quarter: 2010Q2

REPORT INFORMATION
  Report Type: 
  Country: None (occurrence: None)
  Receive Date: 20100507
  Receipt Date: 20100503
  Transmission Date: 20101027
  Serious: Yes (Life-Threatening, Other)
  Sender: FDA-Public Use
  Company Number: PHHY2010BR22676

PATIENT
  Sex: Female

DRUGS (3)
  1. CODATEN [Suspect]
     Indication: INTERVERTEBRAL DISC PROTRUSION
     Dosage: 1 TABLET DAILY
     Route: 048
     Dates: start: 20100309, end: 20100310
  2. CODATEN [Suspect]
     Indication: FIBROMYALGIA
     Dosage: UNK
  3. MICRONOR [Concomitant]
     Dosage: ONE TABLET DAILY
     Route: 048

REACTIONS (11)
  - APPARENT DEATH [None]
  - BLOOD PRESSURE INCREASED [None]
  - DIZZINESS [None]
  - DRUG EXPOSURE VIA BREAST MILK [None]
  - DRUG INEFFECTIVE [None]
  - FEELING ABNORMAL [None]
  - HEADACHE [None]
  - HYPERHIDROSIS [None]
  - LABYRINTHITIS [None]
  - NAUSEA [None]
  - TREATMENT NONCOMPLIANCE [None]
